FAERS Safety Report 8460131-6 (Version None)
Quarter: 2012Q2

REPORT INFORMATION
  Report Type: 
  Country: None (occurrence: None)
  Receive Date: 20120622
  Receipt Date: 20120619
  Transmission Date: 20120825
  Serious: No
  Sender: FDA-Public Use
  Company Number: US-PFIZER INC-2012100586

PATIENT
  Sex: Female
  Weight: 70 kg

DRUGS (20)
  1. LEVOTHYROXINE [Concomitant]
     Indication: HYPOTHYROIDISM
     Dosage: 50 UG, UNK
  2. LIDODERM [Concomitant]
     Dosage: 5% PATCH, 2XDAY
  3. LISINOPRIL [Concomitant]
     Indication: HYPERTENSION
     Dosage: 20 MG, 1X/DAY
     Dates: start: 20110207
  4. METFORMIN [Concomitant]
     Indication: TYPE 2 DIABETES MELLITUS
     Dosage: 500 MG, 2X/DAY
     Dates: start: 20060806
  5. PREMARIN [Suspect]
     Indication: VULVOVAGINAL DRYNESS
     Dosage: UNK
     Route: 067
     Dates: start: 20051101, end: 20111101
  6. METFORMIN [Concomitant]
     Dosage: 500 MG, 3X/DAY
     Dates: start: 20100610
  7. PRILOSEC [Concomitant]
     Dosage: 20 MG, 1X/DAY
  8. FLONASE [Concomitant]
     Dosage: 0.1 MG, 1X/DAY (EACH NOSTRIL)
     Route: 045
     Dates: start: 20120409
  9. EXTRA STRENGTH TYLENOL [Concomitant]
     Indication: PAIN
     Dosage: UNK
     Route: 048
  10. FISH OIL [Concomitant]
     Dosage: UNK
  11. MAXZIDE [Concomitant]
     Dosage: 25MG/37.5MG
     Route: 048
     Dates: start: 20110519
  12. PREMARIN [Suspect]
     Indication: ATROPHIC VULVOVAGINITIS
     Dosage: 1 G, 3 TIMES/WEEK
     Route: 067
     Dates: start: 20100817, end: 20120423
  13. EVISTA [Concomitant]
     Indication: OSTEOPOROSIS
     Dosage: 60 MG, 1X/DAY
     Route: 048
     Dates: start: 20061023
  14. ZOCOR [Concomitant]
     Indication: BLOOD CHOLESTEROL INCREASED
     Dosage: 20 MG, 1X/DAY
     Dates: start: 20090729
  15. CELEXA [Concomitant]
     Indication: DEPRESSION
     Dosage: 10 MG, 1X/DAY
     Route: 048
     Dates: start: 20101004
  16. ALBUTEROL [Concomitant]
     Dosage: UNK
     Dates: start: 20070524
  17. ERYTHROMYCIN [Concomitant]
     Dosage: 0.5% OINTMENT, UNK
  18. NEURONTIN [Concomitant]
     Dosage: 100 MG, UNK
     Dates: start: 20100421
  19. PROAIR HFA [Concomitant]
     Dosage: 90 UG, EVERY 4 HRS AS NEEDED
     Route: 048
     Dates: start: 20110411
  20. SYNTHROID [Concomitant]
     Dosage: 0.1 MG, 1X/DAY
     Route: 048
     Dates: start: 20100621

REACTIONS (4)
  - VULVOVAGINAL PAIN [None]
  - DISCOMFORT [None]
  - VULVOVAGINAL BURNING SENSATION [None]
  - INSOMNIA [None]
